FAERS Safety Report 7245864-1 (Version None)
Quarter: 2011Q1

REPORT INFORMATION
  Report Type: 
  Country: None (occurrence: None)
  Receive Date: 20110126
  Receipt Date: 20100408
  Transmission Date: 20110831
  Serious: Yes (Other)
  Sender: FDA-Public Use
  Company Number: US-MERCK-1004USA01235

PATIENT
  Sex: Male

DRUGS (1)
  1. ZOCOR [Suspect]
     Indication: BLOOD CHOLESTEROL INCREASED
     Route: 048
     Dates: start: 20080101, end: 20100301

REACTIONS (14)
  - DEAFNESS [None]
  - ANGER [None]
  - DEPRESSION [None]
  - SKIN DISORDER [None]
  - BLOOD TESTOSTERONE ABNORMAL [None]
  - DIZZINESS [None]
  - VISION BLURRED [None]
  - ABDOMINAL DISTENSION [None]
  - MALABSORPTION [None]
  - AMNESIA [None]
  - IRRITABILITY [None]
  - MUSCLE SPASMS [None]
  - URINARY TRACT DISORDER [None]
  - FLATULENCE [None]
